FAERS Safety Report 21422665 (Version 2)
Quarter: 2022Q4

REPORT INFORMATION
  Report Type: Report from Study
  Country: CZ (occurrence: CZ)
  Receive Date: 20221007
  Receipt Date: 20221028
  Transmission Date: 20230112
  Serious: Yes (Other)
  Sender: FDA-Public Use
  Company Number: CZ-JNJFOC-20220962206

PATIENT
  Age: 53 Year
  Sex: Female
  Weight: 121.5 kg

DRUGS (4)
  1. TREMFYA [Suspect]
     Active Substance: GUSELKUMAB
     Indication: Psoriasis
     Route: 065
  2. TREMFYA [Suspect]
     Active Substance: GUSELKUMAB
  3. TREMFYA [Suspect]
     Active Substance: GUSELKUMAB
  4. SECUKINUMAB [Suspect]
     Active Substance: SECUKINUMAB
     Indication: Product used for unknown indication
     Dosage: DATE OF LAST ADMINISTRATION BEFORE THE EVENT ON 17-DEC-2021 AND CONTINUED
     Route: 065
     Dates: start: 20200529

REACTIONS (1)
  - Pneumonia [Recovered/Resolved with Sequelae]

NARRATIVE: CASE EVENT DATE: 20220101
